FAERS Safety Report 20151926 (Version 1)
Quarter: 2021Q4

REPORT INFORMATION
  Report Type: Spontaneous
  Country: US (occurrence: US)
  Receive Date: 20211206
  Receipt Date: 20211206
  Transmission Date: 20220303
  Serious: Yes (Hospitalization)
  Sender: FDA-Public Use
  Company Number: US-ELI_LILLY_AND_COMPANY-US202112000462

PATIENT
  Age: 76 Year
  Sex: Male

DRUGS (8)
  1. GEMCITABINE HYDROCHLORIDE [Suspect]
     Active Substance: GEMCITABINE HYDROCHLORIDE
     Indication: Adenocarcinoma pancreas
     Dosage: 1000 MG/KG, OTHER (EVERY 8 DAYS)
     Route: 041
     Dates: start: 20211015, end: 20211029
  2. CIPROFLOXACIN [Suspect]
     Active Substance: CIPROFLOXACIN
     Indication: Product used for unknown indication
     Dosage: UNK UNK, UNKNOWN
     Route: 065
  3. ALPRAZOLAM [Concomitant]
     Active Substance: ALPRAZOLAM
     Indication: Anxiety
     Dosage: 0.25 MG, PRN
     Route: 048
     Dates: start: 20210923
  4. SENNOSIDES A AND B [Concomitant]
     Active Substance: SENNOSIDES A AND B
     Indication: Constipation
     Dosage: 8.6 MG, PRN
     Route: 048
     Dates: start: 20210923
  5. OXCARBAZEPINE [Concomitant]
     Active Substance: OXCARBAZEPINE
     Indication: Seizure
     Dosage: 450 MG, DAILY
     Route: 048
     Dates: start: 20210923
  6. POLYETHYLENE GLYCOLS [Concomitant]
     Active Substance: POLYETHYLENE GLYCOLS
     Indication: Constipation
     Dosage: 17 G, PRN
     Route: 048
     Dates: start: 20210923
  7. TAMSULOSIN [Concomitant]
     Active Substance: TAMSULOSIN
     Indication: Benign prostatic hyperplasia
     Dosage: 0.4 MG, DAILY
     Route: 048
     Dates: start: 20210923
  8. TOPIRAMATE [Concomitant]
     Active Substance: TOPIRAMATE
     Indication: Headache
     Dosage: 150 MG, DAILY
     Route: 048
     Dates: start: 20210923

REACTIONS (2)
  - Sepsis [Not Recovered/Not Resolved]
  - Enterocolitis infectious [Not Recovered/Not Resolved]

NARRATIVE: CASE EVENT DATE: 20211105
